FAERS Safety Report 10732017 (Version 1)
Quarter: 2015Q1

REPORT INFORMATION
  Report Type: Spontaneous
  Country: US (occurrence: US)
  Receive Date: 20150123
  Receipt Date: 20150123
  Transmission Date: 20150721
  Serious: Yes (Other)
  Sender: FDA-Public Use
  Company Number: US-AMGEN-USASP2015005671

PATIENT
  Age: 52 Year
  Sex: Male

DRUGS (2)
  1. ENBREL [Suspect]
     Active Substance: ETANERCEPT
     Indication: RHEUMATOID ARTHRITIS
     Dosage: 50 MG, QWK
     Route: 065
     Dates: start: 201412, end: 201501
  2. ENBREL [Suspect]
     Active Substance: ETANERCEPT
     Indication: PSORIATIC ARTHROPATHY

REACTIONS (15)
  - Faecaloma [Recovering/Resolving]
  - Nausea [Recovered/Resolved]
  - Urine abnormality [Not Recovered/Not Resolved]
  - Haematochezia [Not Recovered/Not Resolved]
  - Vomiting [Recovered/Resolved]
  - Injection site swelling [Recovered/Resolved]
  - Infrequent bowel movements [Recovering/Resolving]
  - Contusion [Recovered/Resolved]
  - Increased tendency to bruise [Not Recovered/Not Resolved]
  - Ingrowing nail [Recovered/Resolved]
  - Injection site reaction [Recovered/Resolved]
  - Nail infection [Recovered/Resolved]
  - Injection site bruising [Recovered/Resolved]
  - Constipation [Recovering/Resolving]
  - Injection site erythema [Recovered/Resolved]
